FAERS Safety Report 6522114-2 (Version None)
Quarter: 2009Q4

REPORT INFORMATION
  Report Type: 
  Country: None (occurrence: None)
  Receive Date: 20091222
  Receipt Date: 20091216
  Transmission Date: 20100525
  Serious: Yes (Other)
  Sender: FDA-Public Use
  Company Number: ALL1-2009-04057

PATIENT
  Age: 9 Year
  Sex: Male
  Weight: 29.5 kg

DRUGS (5)
  1. DAYTRANA [Suspect]
     Indication: ATTENTION DEFICIT/HYPERACTIVITY DISORDER
     Dosage: 30 MG, 1X/DAY:QD, TRANSDERMAL
     Route: 062
  2. METHYLIN     (METHYLPHENIDATE HYDROCHLORIDE) [Concomitant]
  3. MITAZAPINE (MIRTAZAPINE) [Concomitant]
  4. CLONIDINE [Concomitant]
  5. MELATONIN (MELATONIN) [Concomitant]

REACTIONS (2)
  - APPLICATION SITE HAEMATOMA [None]
  - PNEUMONIA [None]
